FAERS Safety Report 24836156 (Version 2)
Quarter: 2025Q1

REPORT INFORMATION
  Report Type: Spontaneous
  Country: US (occurrence: US)
  Receive Date: 20250113
  Receipt Date: 20250124
  Transmission Date: 20250408
  Serious: Yes (Life-Threatening, Hospitalization)
  Sender: MACLEODS
  Company Number: US-MACLEODS PHARMA-MAC2025050988

PATIENT

DRUGS (3)
  1. ATORVASTATIN [Suspect]
     Active Substance: ATORVASTATIN
     Indication: Cerebrovascular accident
     Route: 065
  2. CLOPIDOGREL [Concomitant]
     Active Substance: CLOPIDOGREL BISULFATE
     Route: 065
  3. ASPIRIN [Concomitant]
     Active Substance: ASPIRIN
     Route: 065

REACTIONS (5)
  - Drug-induced liver injury [Recovered/Resolved]
  - Acute kidney injury [Recovered/Resolved]
  - Hepatic necrosis [Recovered/Resolved]
  - Hepatitis [Recovered/Resolved]
  - Rhabdomyolysis [Recovered/Resolved]
